FAERS Safety Report 4728115-9 (Version None)
Quarter: 2005Q3

REPORT INFORMATION
  Report Type: 
  Country: None (occurrence: None)
  Receive Date: 20050729
  Receipt Date: 20050718
  Transmission Date: 20060218
  Serious: Yes (Other)
  Sender: FDA-Public Use
  Company Number: PHBS2005ES10355

PATIENT
  Age: 68 Year
  Sex: Male

DRUGS (9)
  1. CLOFAZIMINE [Suspect]
     Indication: PULMONARY TUBERCULOSIS
     Dosage: 100 MG/DAY
     Route: 048
  2. LINEZOLID [Suspect]
     Indication: PULMONARY TUBERCULOSIS
     Dosage: 600 MG, Q12H
     Route: 042
  3. LINEZOLID [Suspect]
     Route: 048
  4. CYCLOSERINE [Suspect]
     Indication: PULMONARY TUBERCULOSIS
     Dosage: 250 MG, Q12H
     Route: 048
  5. METRONIDAZOLE [Suspect]
     Indication: PULMONARY TUBERCULOSIS
     Dosage: 500 MG, Q8H
     Route: 048
  6. CAPREOMYCIN [Suspect]
     Indication: PULMONARY TUBERCULOSIS
     Dosage: 1 G/DAY
     Route: 030
  7. CAPREOMYCIN [Suspect]
     Dosage: 1 G, QW3
     Route: 030
  8. FUSIDIC ACID [Suspect]
     Indication: PULMONARY TUBERCULOSIS
     Dosage: 1 G, Q8H
     Route: 048
  9. AMOXICILLIN AND CLAVULANATE POTASSIUM [Suspect]
     Indication: PULMONARY TUBERCULOSIS
     Dosage: 1 G, Q6H
     Route: 042

REACTIONS (6)
  - GRAND MAL CONVULSION [None]
  - HYPERBILIRUBINAEMIA [None]
  - HYPOAESTHESIA [None]
  - OPTIC NEUROPATHY [None]
  - RENAL DISORDER [None]
  - VISUAL ACUITY REDUCED [None]
